FAERS Safety Report 25404024 (Version 1)
Quarter: 2025Q2

REPORT INFORMATION
  Report Type: Spontaneous
  Country: AU (occurrence: AU)
  Receive Date: 20250606
  Receipt Date: 20250606
  Transmission Date: 20250717
  Serious: Yes (Hospitalization)
  Sender: ALEXION PHARMACEUTICALS
  Company Number: AU-ASTRAZENECA-202506OCE000703AU

PATIENT
  Age: 78 Year

DRUGS (1)
  1. DAPAGLIFLOZIN [Suspect]
     Active Substance: DAPAGLIFLOZIN
     Indication: Cardiac failure congestive

REACTIONS (5)
  - Constipation [Recovering/Resolving]
  - Dysuria [Recovering/Resolving]
  - Penile discharge [Recovering/Resolving]
  - Pollakiuria [Recovering/Resolving]
  - Urinary tract infection [Recovering/Resolving]
